FAERS Safety Report 9397417 (Version 1)
Quarter: 2013Q2

REPORT INFORMATION
  Report Type: Spontaneous
  Country: US (occurrence: None)
  Receive Date: 20130628
  Receipt Date: 20130628
  Transmission Date: 20140414
  Serious: Yes (Hospitalization)
  Sender: FDA-Public Use
  Company Number: 2013036565

PATIENT
  Age: 25 Year
  Sex: Female

DRUGS (1)
  1. HUMATE-P [Suspect]
     Dosage: INTRAVENOUS (NOT OTHERWISE SPECIFIED)?
     Route: 042

REACTIONS (2)
  - Surgery [None]
  - Malaise [None]
